FAERS Safety Report 13688767 (Version 2)
Quarter: 2018Q1

REPORT INFORMATION
  Report Type: Spontaneous
  Country: US (occurrence: US)
  Receive Date: 20170626
  Receipt Date: 20180126
  Transmission Date: 20180508
  Serious: No
  Sender: FDA-Public Use
  Company Number: US-BIOGEN-2017BI00420016

PATIENT
  Sex: Female

DRUGS (1)
  1. TYSABRI [Suspect]
     Active Substance: NATALIZUMAB
     Indication: MULTIPLE SCLEROSIS
     Dosage: INFUSED FOR OVER ONE HOUR
     Route: 042
     Dates: start: 20170120

REACTIONS (8)
  - Migraine [Unknown]
  - Tremor [Not Recovered/Not Resolved]
  - Musculoskeletal stiffness [Recovered/Resolved]
  - Multiple sclerosis [Not Recovered/Not Resolved]
  - Gait inability [Not Recovered/Not Resolved]
  - Hypoaesthesia [Unknown]
  - Muscle spasms [Unknown]
  - Urinary incontinence [Not Recovered/Not Resolved]
